FAERS Safety Report 4285692-2 (Version None)
Quarter: 2004Q1

REPORT INFORMATION
  Report Type: 
  Country: None (occurrence: None)
  Receive Date: 20040203
  Receipt Date: 20040121
  Transmission Date: 20041129
  Serious: Yes (Other)
  Sender: FDA-Public Use
  Company Number: US-JNJFOC-20030805721

PATIENT
  Age: 34 Year
  Sex: Male

DRUGS (8)
  1. DURAGESIC [Suspect]
     Indication: PAIN
     Dosage: 100 UG/HR, TRANSDERMAL; 50 UG/HR, 1 IN 48 HOUR, TRANSDERMAL; 25 UG/HR, 1 IN 48 HOUR, TRANSDERMAL
     Route: 062
     Dates: end: 20030825
  2. DURAGESIC [Suspect]
     Indication: PAIN
     Dosage: 100 UG/HR, TRANSDERMAL; 50 UG/HR, 1 IN 48 HOUR, TRANSDERMAL; 25 UG/HR, 1 IN 48 HOUR, TRANSDERMAL
     Route: 062
     Dates: start: 20030822
  3. DURAGESIC [Suspect]
     Indication: PAIN
     Dosage: 100 UG/HR, TRANSDERMAL; 50 UG/HR, 1 IN 48 HOUR, TRANSDERMAL; 25 UG/HR, 1 IN 48 HOUR, TRANSDERMAL
     Route: 062
     Dates: start: 20030825
  4. VIOXX [Concomitant]
  5. REMERON [Concomitant]
  6. COLACE (DOCUSATE SODIUM) TABLETS [Concomitant]
  7. MIRALAX (MACROGOL) TABLETS [Concomitant]
  8. CLARITIN [Concomitant]

REACTIONS (17)
  - ANAPHYLACTIC REACTION [None]
  - CHILLS [None]
  - CONSTIPATION [None]
  - CONVULSION [None]
  - DIZZINESS [None]
  - DYSPNOEA [None]
  - FATIGUE [None]
  - FEELING ABNORMAL [None]
  - HYPERHIDROSIS [None]
  - MEDICATION ERROR [None]
  - NAUSEA [None]
  - OEDEMA MOUTH [None]
  - OVERDOSE [None]
  - PANIC ATTACK [None]
  - PRURITUS GENERALISED [None]
  - SOMNOLENCE [None]
  - SWELLING FACE [None]
